FAERS Safety Report 12216524 (Version 1)
Quarter: 2016Q1

REPORT INFORMATION
  Report Type: Spontaneous
  Country: US (occurrence: None)
  Receive Date: 20160328
  Receipt Date: 20160328
  Transmission Date: 20160526
  Serious: Yes (Hospitalization, Other)
  Sender: FDA-Public Use
  Company Number: None

PATIENT
  Age: 52 Year
  Sex: Male
  Weight: 77.7 kg

DRUGS (2)
  1. SIMVASTATIN. [Suspect]
     Active Substance: SIMVASTATIN
     Indication: HYPERLIPIDAEMIA
     Dosage: ~12/10/2015 THRU ~03/10/2015
     Dates: start: 20151210
  2. SIMVASTATIN. [Suspect]
     Active Substance: SIMVASTATIN
     Indication: DIABETES MELLITUS
     Dosage: ~12/10/2015 THRU ~03/10/2015
     Dates: start: 20151210

REACTIONS (4)
  - Wheezing [None]
  - Obliterative bronchiolitis [None]
  - Cough [None]
  - Chronic obstructive pulmonary disease [None]

NARRATIVE: CASE EVENT DATE: 20150715
